FAERS Safety Report 7829032-8 (Version None)
Quarter: 2011Q4

REPORT INFORMATION
  Report Type: 
  Country: None (occurrence: None)
  Receive Date: 20111020
  Receipt Date: 20111019
  Transmission Date: 20120403
  Serious: Yes (Life-Threatening, Hospitalization, Disabling)
  Sender: FDA-Public Use
  Company Number: JP-B.I. PHARMACEUTICALS,INC./RIDGEFIELD-2011-BP-23057NB

PATIENT
  Sex: Male
  Weight: 86 kg

DRUGS (10)
  1. ISOSORBIDE MONONITRATE [Concomitant]
     Indication: MYOCARDIAL ISCHAEMIA
     Dosage: 40 MG
     Route: 048
  2. SUNRYTHM [Concomitant]
     Indication: ATRIAL FIBRILLATION
     Dosage: 100 MG
     Route: 048
  3. FUROSEMIDE [Concomitant]
     Indication: MYOCARDIAL ISCHAEMIA
     Dosage: 10 MG
     Route: 048
  4. DEPAS [Concomitant]
     Dosage: 0.5 MG
     Route: 048
  5. LEDOLPER [Concomitant]
     Dosage: 1.25 MG
     Route: 048
  6. MAGMITT [Concomitant]
     Dosage: 1320 MG
     Route: 048
  7. LEVOTHYROXINE SODIUM [Concomitant]
     Indication: HYPOTHYROIDISM
     Dosage: 50 MCG
     Route: 048
  8. NEO-MERCAZOLE TAB [Concomitant]
     Indication: HYPOTHYROIDISM
     Dosage: 10 MG
     Route: 048
  9. DIOVAN [Concomitant]
     Indication: HYPERTENSION
     Dosage: 40 MG
     Route: 048
  10. PRADAXA [Suspect]
     Indication: ATRIAL FIBRILLATION
     Dosage: 220 MG
     Route: 048
     Dates: start: 20110413, end: 20110928

REACTIONS (1)
  - INTERSTITIAL LUNG DISEASE [None]
